FAERS Safety Report 8114133-X (Version None)
Quarter: 2012Q1

REPORT INFORMATION
  Report Type: 
  Country: None (occurrence: None)
  Receive Date: 20120204
  Receipt Date: 20120123
  Transmission Date: 20120608
  Serious: Yes (Hospitalization, Other)
  Sender: FDA-Public Use
  Company Number: AU-MYLANLABS-2012S1001494

PATIENT
  Age: 61 Year
  Sex: Female

DRUGS (2)
  1. METOPROLOL TARTRATE [Suspect]
     Indication: ATRIOVENTRICULAR BLOCK
     Route: 048
     Dates: start: 20111001, end: 20111022
  2. MICARDIS [Concomitant]

REACTIONS (5)
  - HYPOAESTHESIA [None]
  - PARALYSIS [None]
  - NECK PAIN [None]
  - PAIN [None]
  - DIZZINESS [None]
